FAERS Safety Report 6672109-3 (Version None)
Quarter: 2010Q2

REPORT INFORMATION
  Report Type: 
  Country: None (occurrence: None)
  Receive Date: 20100407
  Receipt Date: 20100407
  Transmission Date: 20101027
  Serious: Yes (Life-Threatening, Hospitalization)
  Sender: FDA-Public Use
  Company Number: None

PATIENT
  Sex: Female
  Weight: 86.9 kg

DRUGS (5)
  1. CYCLOBENZAPRINE [Suspect]
     Indication: MUSCULOSKELETAL DISORDER
  2. FESOTERODINE [Suspect]
     Indication: URINARY INCONTINENCE
  3. ENABLEX [Concomitant]
  4. NAMENDA [Concomitant]
  5. ARICEPT [Concomitant]

REACTIONS (6)
  - CARDIAC ARREST [None]
  - DIARRHOEA [None]
  - ELECTROCARDIOGRAM QT INTERVAL [None]
  - FALL [None]
  - NAUSEA [None]
  - VOMITING [None]
